FAERS Safety Report 12665631 (Version 1)
Quarter: 2016Q3

REPORT INFORMATION
  Report Type: Spontaneous
  Country: US (occurrence: US)
  Receive Date: 20160818
  Receipt Date: 20160818
  Transmission Date: 20161109
  Serious: No
  Sender: FDA-Public Use
  Company Number: US-PFIZER INC-2016392421

PATIENT
  Age: 65 Year
  Sex: Female

DRUGS (1)
  1. ADVIL MIGRAINE [Suspect]
     Active Substance: IBUPROFEN
     Dosage: 2 DF, UNK

REACTIONS (2)
  - Drug ineffective [Unknown]
  - Intentional product misuse [Unknown]
